FAERS Safety Report 4301710-7 (Version None)
Quarter: 2004Q1

REPORT INFORMATION
  Report Type: 
  Country: None (occurrence: None)
  Receive Date: 20040126
  Receipt Date: 20031002
  Transmission Date: 20041129
  Serious: No
  Sender: FDA-Public Use
  Company Number: USA031048826

PATIENT
  Age: 9 Year
  Sex: Female
  Weight: 33 kg

DRUGS (2)
  1. STRATTERA [Suspect]
     Dosage: 40 MG/AT BEDTIME
  2. ZYRTEC [Concomitant]

REACTIONS (5)
  - ABDOMINAL PAIN UPPER [None]
  - ANGINA PECTORIS [None]
  - CRYING [None]
  - FEELING ABNORMAL [None]
  - MYDRIASIS [None]
